FAERS Safety Report 19926106 (Version 8)
Quarter: 2021Q4

REPORT INFORMATION
  Report Type: Spontaneous
  Country: US (occurrence: US)
  Receive Date: 20211007
  Receipt Date: 20211120
  Transmission Date: 20220303
  Serious: Yes (Death, Hospitalization, Other)
  Sender: FDA-Public Use
  Company Number: US-UNITED THERAPEUTICS-UNT-2021-017455

PATIENT
  Sex: Female
  Weight: 83.9 kg

DRUGS (9)
  1. REMODULIN [Suspect]
     Active Substance: TREPROSTINIL
     Indication: Pulmonary arterial hypertension
     Dosage: UNK, CONTINUING
     Route: 058
     Dates: start: 20210630
  2. REMODULIN [Suspect]
     Active Substance: TREPROSTINIL
     Dosage: 0.024 ?G/KG, CONTINUING
     Route: 058
     Dates: start: 2021
  3. REMODULIN [Suspect]
     Active Substance: TREPROSTINIL
     Dosage: UNK, CONTINUING
     Route: 058
     Dates: start: 2021, end: 20211107
  4. ADEMPAS [Suspect]
     Active Substance: RIOCIGUAT
     Indication: Product used for unknown indication
     Dosage: UNK
     Route: 065
  5. ADEMPAS [Suspect]
     Active Substance: RIOCIGUAT
     Dosage: 1 MG, TID
     Route: 065
     Dates: start: 20210925
  6. MODERNA COVID-19 VACCINE [Suspect]
     Active Substance: CX-024414
     Indication: COVID-19 immunisation
     Dosage: UNK
     Route: 065
  7. OXYGEN [Suspect]
     Active Substance: OXYGEN
     Indication: Product used for unknown indication
     Dosage: UNK
     Route: 065
  8. OPSUMIT [Concomitant]
     Active Substance: MACITENTAN
     Indication: Product used for unknown indication
     Dosage: UNK
     Route: 065
  9. ELIQUIS [Concomitant]
     Active Substance: APIXABAN
     Indication: Product used for unknown indication
     Dosage: UNK
     Route: 065

REACTIONS (29)
  - Multiple organ dysfunction syndrome [Fatal]
  - Hypoxia [Not Recovered/Not Resolved]
  - Dyspnoea [Unknown]
  - Device dislocation [Recovered/Resolved]
  - Rectal haemorrhage [Unknown]
  - Diarrhoea [Not Recovered/Not Resolved]
  - Hypervolaemia [Not Recovered/Not Resolved]
  - Oedema peripheral [Unknown]
  - Hyponatraemia [Not Recovered/Not Resolved]
  - Gastroenteritis [Not Recovered/Not Resolved]
  - Oxygen consumption increased [Unknown]
  - Vaccination complication [Unknown]
  - Constipation [Unknown]
  - Cardiomegaly [Unknown]
  - Headache [Unknown]
  - Dyspnoea exertional [Unknown]
  - Infusion site erythema [Unknown]
  - Faeces soft [Unknown]
  - Oxygen saturation decreased [Unknown]
  - Nasal dryness [Unknown]
  - Fatigue [Unknown]
  - Feeling abnormal [Unknown]
  - Unintentional medical device removal [Recovered/Resolved]
  - Infusion site pain [Unknown]
  - Infusion site swelling [Unknown]
  - Infusion site induration [Unknown]
  - Hypotension [Unknown]
  - Malaise [Unknown]
  - Weight increased [Unknown]

NARRATIVE: CASE EVENT DATE: 20210101
